FAERS Safety Report 4982218-2 (Version None)
Quarter: 2006Q2

REPORT INFORMATION
  Report Type: 
  Country: None (occurrence: None)
  Receive Date: 20060421
  Receipt Date: 20060409
  Transmission Date: 20061013
  Serious: Yes (Death, Hospitalization)
  Sender: FDA-Public Use
  Company Number: 13895

PATIENT
  Sex: Female

DRUGS (1)
  1. METHOTREXATE [Suspect]
     Indication: ECTOPIC PREGNANCY
     Dosage: 50 MG/M2 FREQ IV
     Route: 042

REACTIONS (30)
  - ABDOMINAL DISCOMFORT [None]
  - ACUTE RESPIRATORY DISTRESS SYNDROME [None]
  - ANAEMIA [None]
  - BONE MARROW NECROSIS [None]
  - CARDIAC DISORDER [None]
  - CONFUSIONAL STATE [None]
  - DELIRIUM [None]
  - DIARRHOEA [None]
  - DRUG EXPOSURE DURING PREGNANCY [None]
  - DRUG LEVEL INCREASED [None]
  - DRUG TOXICITY [None]
  - ELECTROLYTE IMBALANCE [None]
  - ERYTHEMA [None]
  - GASTROINTESTINAL NECROSIS [None]
  - HEPATIC NECROSIS [None]
  - INTESTINAL ISCHAEMIA [None]
  - LACTIC ACIDOSIS [None]
  - LUNG DISORDER [None]
  - NAUSEA [None]
  - NECROSIS [None]
  - NEUTROPENIA [None]
  - OFF LABEL USE [None]
  - ORAL CANDIDIASIS [None]
  - ORAL PAIN [None]
  - PNEUMONIA [None]
  - PULMONARY HAEMORRHAGE [None]
  - SHOCK [None]
  - SYSTEMIC INFLAMMATORY RESPONSE SYNDROME [None]
  - TOXIC EPIDERMAL NECROLYSIS [None]
  - VOMITING [None]
